FAERS Safety Report 5510687-8 (Version None)
Quarter: 2007Q4

REPORT INFORMATION
  Report Type: 
  Country: None (occurrence: None)
  Receive Date: 20071107
  Receipt Date: 20071029
  Transmission Date: 20080405
  Serious: Yes (Hospitalization)
  Sender: FDA-Public Use
  Company Number: 2007S1000577

PATIENT
  Age: 33 Year
  Sex: Male

DRUGS (5)
  1. AZASAN [Suspect]
     Indication: COLITIS ULCERATIVE
     Dosage: 50 MG;QD;
     Dates: start: 20070618, end: 20070627
  2. COLAZAL [Suspect]
     Indication: COLITIS ULCERATIVE
     Dosage: 2.25 GM;TID;PO
     Route: 048
     Dates: start: 20060420
  3. PRIMAL DEFENSE (CON.) [Concomitant]
  4. PREDNISONE (CON.) [Concomitant]
  5. MECLIZINE /0072801/ (CON.) [Concomitant]

REACTIONS (11)
  - DEHYDRATION [None]
  - GLOMERULOSCLEROSIS [None]
  - KIDNEY FIBROSIS [None]
  - MENIERE'S DISEASE [None]
  - NEPHRITIS INTERSTITIAL [None]
  - PYREXIA [None]
  - RENAL ARTERIOSCLEROSIS [None]
  - RENAL FAILURE ACUTE [None]
  - RENAL TUBULAR ATROPHY [None]
  - RENAL TUBULAR NECROSIS [None]
  - RENAL VESSEL DISORDER [None]
